FAERS Safety Report 11770688 (Version 1)
Quarter: 2015Q4

REPORT INFORMATION
  Report Type: Spontaneous
  Country: US (occurrence: US)
  Receive Date: 20151123
  Receipt Date: 20151123
  Transmission Date: 20160304
  Serious: No
  Sender: FDA-Public Use
  Company Number: US-CREALTA PHARMACEUTICALS-2014S1000066

PATIENT
  Age: 62 Year
  Sex: Female
  Weight: 90.8 kg

DRUGS (9)
  1. MIGERGOT [Suspect]
     Active Substance: CAFFEINE\ERGOTAMINE TARTRATE
     Route: 054
     Dates: start: 20141014, end: 20141014
  2. XANAX [Concomitant]
     Active Substance: ALPRAZOLAM
     Indication: MENTAL DISORDER
     Route: 048
  3. FLEXERIL [Concomitant]
     Active Substance: CYCLOBENZAPRINE HYDROCHLORIDE
     Indication: PAIN
     Route: 048
  4. PREVACID [Concomitant]
     Active Substance: LANSOPRAZOLE
     Indication: ULCER
     Route: 048
  5. MIGERGOT [Suspect]
     Active Substance: CAFFEINE\ERGOTAMINE TARTRATE
     Indication: MIGRAINE
     Route: 054
     Dates: start: 2011
  6. MIGERGOT [Suspect]
     Active Substance: CAFFEINE\ERGOTAMINE TARTRATE
     Route: 054
     Dates: start: 20141015, end: 20141015
  7. MIGERGOT [Suspect]
     Active Substance: CAFFEINE\ERGOTAMINE TARTRATE
     Route: 054
     Dates: start: 20141016, end: 20141016
  8. OXYCONTIN [Concomitant]
     Active Substance: OXYCODONE HYDROCHLORIDE
     Indication: PAIN
     Route: 048
  9. OXYCODONE [Concomitant]
     Active Substance: OXYCODONE
     Indication: PAIN
     Dosage: 7.5/325 MG
     Route: 048

REACTIONS (4)
  - Product friable [Recovered/Resolved]
  - Rectal discharge [Unknown]
  - Inappropriate schedule of drug administration [Recovered/Resolved]
  - Drug ineffective [Recovered/Resolved]

NARRATIVE: CASE EVENT DATE: 20141014
